FAERS Safety Report 8128114-3 (Version None)
Quarter: 2012Q1

REPORT INFORMATION
  Report Type: 
  Country: None (occurrence: None)
  Receive Date: 20120210
  Receipt Date: 20120203
  Transmission Date: 20120608
  Serious: Yes (Hospitalization, Other)
  Sender: FDA-Public Use
  Company Number: US-BAYER-201036195NA

PATIENT
  Age: 48 Year
  Sex: Female
  Weight: 60 kg

DRUGS (9)
  1. FROVA [Concomitant]
     Dosage: UNK
  2. ZYRTEC [Concomitant]
     Dosage: 25 MG, UNK
     Dates: start: 20050401, end: 20071201
  3. YAZ [Suspect]
     Indication: MIGRAINE
  4. ZOLOFT [Concomitant]
     Dosage: 25 MG, QD
  5. YASMIN [Suspect]
     Indication: PREMENSTRUAL SYNDROME
     Dosage: UNK
     Dates: start: 20050801, end: 20060901
  6. ANTIDEPRESSANTS [Concomitant]
     Indication: MENOPAUSE
     Route: 048
  7. PROPOXYPHENE HCL AND ACETAMINOPHEN [Concomitant]
     Dosage: 25 UNK, UNK
  8. YAZ [Suspect]
     Indication: PREMENSTRUAL SYNDROME
     Dosage: UNK
     Route: 048
     Dates: start: 20060501, end: 20061201
  9. SERTRALINE HYDROCHLORIDE [Concomitant]
     Indication: MENOPAUSAL SYMPTOMS
     Dosage: 25 MG, UNK
     Dates: start: 20060901

REACTIONS (4)
  - DEEP VEIN THROMBOSIS [None]
  - EMOTIONAL DISTRESS [None]
  - PAIN IN EXTREMITY [None]
  - OEDEMA PERIPHERAL [None]
